FAERS Safety Report 8349288-5 (Version None)
Quarter: 2012Q2

REPORT INFORMATION
  Report Type: 
  Country: None (occurrence: None)
  Receive Date: 20120510
  Receipt Date: 20120508
  Transmission Date: 20120825
  Serious: Yes (Hospitalization)
  Sender: FDA-Public Use
  Company Number: PHHY2011JP91636

PATIENT
  Age: 45 Year
  Sex: Male

DRUGS (8)
  1. HYDROCORTISONE SODIUM SUCCINATE [Concomitant]
     Dosage: 10 MG, UNK
  2. SOMAVERT [Suspect]
     Indication: ACROMEGALY
     Dosage: 10 MG, TWICE A WEEK
     Route: 058
     Dates: start: 20110501
  3. SOMAVERT [Suspect]
     Dosage: 10 MG, SIX TIMES WEEKLY
     Route: 058
     Dates: end: 20111001
  4. SANDOSTATIN LAR [Suspect]
     Indication: ACROMEGALY
     Dosage: 20 MG, UNK
     Route: 030
  5. SANDOSTATIN LAR [Suspect]
     Dosage: 30 MG, UNK
     Route: 030
  6. SOMAVERT [Suspect]
     Dosage: 10 MG, THREE TIMES WEEKLY
     Route: 058
  7. SANDOSTATIN LAR [Suspect]
     Dosage: 40 MG, QMO
     Route: 030
     Dates: end: 20111013
  8. LEVOTHYROXINE SODIUM [Concomitant]
     Dosage: 50 UG, UNK

REACTIONS (10)
  - CHOLECYSTITIS INFECTIVE [None]
  - GALLBLADDER NECROSIS [None]
  - CHOLELITHIASIS [None]
  - INFLAMMATION [None]
  - ABDOMINAL PAIN UPPER [None]
  - RENAL IMPAIRMENT [None]
  - OXYGEN SATURATION DECREASED [None]
  - GENERAL PHYSICAL HEALTH DETERIORATION [None]
  - HEPATIC FUNCTION ABNORMAL [None]
  - ABDOMINAL PAIN [None]
